FAERS Safety Report 6879894-6 (Version None)
Quarter: 2010Q3

REPORT INFORMATION
  Report Type: 
  Country: None (occurrence: None)
  Receive Date: 20100728
  Receipt Date: 20100722
  Transmission Date: 20110219
  Serious: Yes (Hospitalization, Other)
  Sender: FDA-Public Use
  Company Number: US-SANOFI-AVENTIS-2010SA031791

PATIENT
  Age: 43 Year
  Sex: Female
  Weight: 91.17 kg

DRUGS (8)
  1. AMBIEN [Suspect]
     Indication: INSOMNIA
     Route: 048
     Dates: start: 20061016, end: 20081214
  2. CELEXA [Concomitant]
     Indication: DEPRESSION
     Dates: start: 20061201
  3. CELEXA [Concomitant]
     Indication: POST-TRAUMATIC STRESS DISORDER
     Dates: start: 20061201
  4. AMLODIPINE [Concomitant]
     Indication: BLOOD PRESSURE
     Dates: start: 20061201
  5. OMEPRAZOLE [Concomitant]
     Dates: start: 20061201
  6. HYDROCHLOROTHIAZIDE [Concomitant]
     Indication: BLOOD PRESSURE
     Dates: start: 20061201
  7. LOSARTAN POSTASSIUM [Concomitant]
     Dates: start: 20061201
  8. LOPERAMIDE [Concomitant]
     Indication: CONSTIPATION
     Dates: start: 20061201

REACTIONS (4)
  - AMNESIA [None]
  - IMPAIRED DRIVING ABILITY [None]
  - ROAD TRAFFIC ACCIDENT [None]
  - SOMNAMBULISM [None]
